FAERS Safety Report 15208808 (Version 2)
Quarter: 2018Q3

REPORT INFORMATION
  Report Type: Spontaneous
  Country: NZ (occurrence: NZ)
  Receive Date: 20180727
  Receipt Date: 20180817
  Transmission Date: 20181010
  Serious: Yes (Hospitalization, Other)
  Sender: FDA-Public Use
  Company Number: NZ-JNJFOC-20180634644

PATIENT
  Age: 40 Year
  Sex: Male
  Weight: 102 kg

DRUGS (3)
  1. REMICADE [Suspect]
     Active Substance: INFLIXIMAB
     Indication: CROHN^S DISEASE
     Route: 042
     Dates: start: 20170404, end: 20180108
  2. IBUPROFEN. [Concomitant]
     Active Substance: IBUPROFEN
     Indication: ARTHRALGIA
     Route: 065
  3. PREDNISONE. [Concomitant]
     Active Substance: PREDNISONE
     Indication: ARTHRITIS
     Route: 048
     Dates: start: 20180117, end: 20180205

REACTIONS (6)
  - Pneumonitis [Recovered/Resolved]
  - Antinuclear antibody increased [Unknown]
  - Arthritis [Recovering/Resolving]
  - Double stranded DNA antibody positive [Unknown]
  - Meningitis aseptic [Recovered/Resolved]
  - Infection [Unknown]

NARRATIVE: CASE EVENT DATE: 20180122
